FAERS Safety Report 9890299 (Version 2)
Quarter: 2014Q2

REPORT INFORMATION
  Report Type: Spontaneous
  Country: DE (occurrence: DE)
  Receive Date: 20140212
  Receipt Date: 20140425
  Transmission Date: 20141212
  Serious: Yes (Other)
  Sender: FDA-Public Use
  Company Number: DE-BRISTOL-MYERS SQUIBB COMPANY-20128914

PATIENT
  Age: 61 Year
  Sex: Male
  Weight: 105 kg

DRUGS (4)
  1. BYDUREON [Suspect]
     Indication: TYPE 2 DIABETES MELLITUS
     Dosage: 2MG DEPOT INJECTION
     Dates: start: 201205, end: 201310
  2. ASS [Concomitant]
  3. EXFORGE [Concomitant]
  4. GLUCOPHAGE [Concomitant]

REACTIONS (3)
  - Amylase increased [Unknown]
  - Lipase increased [Unknown]
  - Serum ferritin increased [Unknown]
